FAERS Safety Report 7671523-7 (Version None)
Quarter: 2011Q3

REPORT INFORMATION
  Report Type: 
  Country: None (occurrence: None)
  Receive Date: 20110809
  Receipt Date: 20110728
  Transmission Date: 20111222
  Serious: Yes (Hospitalization)
  Sender: FDA-Public Use
  Company Number: US-KINGPHARMUSA00001-K201100899

PATIENT
  Sex: Male
  Weight: 83.9 kg

DRUGS (3)
  1. FLECTOR [Suspect]
     Indication: SCIATICA
     Dosage: 5 PATCH, SINGLE
     Route: 061
     Dates: start: 20110709, end: 20110710
  2. METOPROLOL TARTRATE [Concomitant]
     Indication: HYPERTENSION
     Dosage: 50 MG, BID
     Route: 048
  3. FLECTOR [Suspect]
     Indication: BACK PAIN

REACTIONS (6)
  - COLONIC POLYP [None]
  - ABASIA [None]
  - HAEMATOCHEZIA [None]
  - MUSCULOSKELETAL STIFFNESS [None]
  - PERIPHERAL ARTERIAL OCCLUSIVE DISEASE [None]
  - DIARRHOEA [None]
